FAERS Safety Report 20472741 (Version 1)
Quarter: 2022Q1

REPORT INFORMATION
  Report Type: Spontaneous
  Country: US (occurrence: US)
  Receive Date: 20220215
  Receipt Date: 20220215
  Transmission Date: 20220423
  Serious: No
  Sender: FDA-Public Use
  Company Number: US-TEVA-2022-US-2004457

PATIENT
  Sex: Female

DRUGS (1)
  1. BRINZOLAMIDE [Suspect]
     Active Substance: BRINZOLAMIDE
     Dosage: DOSAGE FORM: SUSPENSION - OPHTHALMIC
     Route: 047

REACTIONS (3)
  - Eye injury [Unknown]
  - Product container issue [Unknown]
  - Poor quality product administered [Unknown]
